FAERS Safety Report 4663709-0 (Version None)
Quarter: 2005Q2

REPORT INFORMATION
  Report Type: 
  Country: None (occurrence: None)
  Receive Date: 20050516
  Receipt Date: 20050502
  Transmission Date: 20051028
  Serious: Yes (Hospitalization, Other)
  Sender: FDA-Public Use
  Company Number: HQWYE400928MAR05

PATIENT
  Age: 60 Year
  Sex: Female
  Weight: 99 kg

DRUGS (8)
  1. TACROLIMUS, CONTROL FOR SIROLIMUS (TACROLIMUS, CONTROL FOR SIROLIMUS) [Suspect]
     Indication: PROPHYLAXIS AGAINST TRANSPLANT REJECTION
     Dosage: 4 MG IN AM, 5 MG IN PM, ORAL
     Route: 048
     Dates: start: 20030126
  2. PROTONIX [Concomitant]
  3. NORVASC [Concomitant]
  4. LABETALOL HCL [Concomitant]
  5. HYZAAR [Concomitant]
  6. PREDNISONE [Concomitant]
  7. ROLAIDS [Concomitant]
  8. CELLCEPT [Concomitant]

REACTIONS (4)
  - DYSPLASIA [None]
  - GASTRIC CANCER STAGE IV [None]
  - GASTROINTESTINAL TRACT ADENOMA [None]
  - IMMUNOSUPPRESSION [None]
